FAERS Safety Report 17940152 (Version 2)
Quarter: 2020Q3

REPORT INFORMATION
  Report Type: Spontaneous
  Country: CN (occurrence: CN)
  Receive Date: 20200624
  Receipt Date: 20200709
  Transmission Date: 20201103
  Serious: Yes (Other)
  Sender: FDA-Public Use
  Company Number: CN-ELI_LILLY_AND_COMPANY-CN202006003724

PATIENT
  Age: 68 Year
  Sex: Female
  Weight: 60 kg

DRUGS (4)
  1. HUMALOG MIX75/25 [Suspect]
     Active Substance: INSULIN LISPRO
     Dosage: 22 U, BID
     Route: 058
  2. HUMULIN R [Suspect]
     Active Substance: INSULIN HUMAN
     Indication: TYPE 2 DIABETES MELLITUS
     Dosage: 18 U, BID(EACH MORNING AND NIGHT)
     Route: 058
     Dates: start: 200707, end: 2018
  3. HUMULIN R [Suspect]
     Active Substance: INSULIN HUMAN
     Dosage: 22 U, BID(EACH MORNING AND NIGHT)
     Route: 058
     Dates: end: 2018
  4. HUMALOG MIX75/25 [Suspect]
     Active Substance: INSULIN LISPRO
     Indication: TYPE 2 DIABETES MELLITUS
     Dosage: 18 U, BID
     Route: 058
     Dates: start: 2018

REACTIONS (3)
  - Cerebral artery stenosis [Unknown]
  - Blood glucose increased [Unknown]
  - Blood glucose decreased [Unknown]
